FAERS Safety Report 13933010 (Version 1)
Quarter: 2017Q3

REPORT INFORMATION
  Report Type: Other
  Country: US (occurrence: US)
  Receive Date: 20170904
  Receipt Date: 20170904
  Transmission Date: 20171127
  Serious: Yes (Hospitalization, Other)
  Sender: FDA-Public Use
  Company Number: US-VELOXIS PHARMACEUTICALS-2025527

PATIENT
  Age: 52 Year
  Sex: Male

DRUGS (3)
  1. ENVARSUS XR [Suspect]
     Active Substance: TACROLIMUS
     Indication: IMMUNOSUPPRESSION
  2. MYCOPHENOLATE MOFETIL. [Suspect]
     Active Substance: MYCOPHENOLATE MOFETIL
  3. HEPARIN [Suspect]
     Active Substance: HEPARIN SODIUM
     Route: 041

REACTIONS (5)
  - Diffuse large B-cell lymphoma [Recovered/Resolved]
  - Splenic haemorrhage [Recovered/Resolved]
  - Pulmonary embolism [Unknown]
  - Intentional product use issue [Unknown]
  - Haemorrhagic ascites [Unknown]
